FAERS Safety Report 5344077-8 (Version None)
Quarter: 2007Q2

REPORT INFORMATION
  Report Type: 
  Country: None (occurrence: None)
  Receive Date: 20070604
  Receipt Date: 20070531
  Transmission Date: 20071010
  Serious: No
  Sender: FDA-Public Use
  Company Number: B0467451A

PATIENT
  Age: 69 Year
  Sex: Male

DRUGS (6)
  1. VALTREX [Suspect]
     Indication: HERPES SIMPLEX
     Dosage: 1000MG TWICE PER DAY
     Route: 048
  2. URINORM [Suspect]
     Route: 048
  3. RENIVACE [Concomitant]
     Route: 048
  4. AMARYL [Concomitant]
     Route: 048
  5. MELBIN [Concomitant]
     Route: 048
  6. MUCOSTA [Concomitant]
     Route: 048

REACTIONS (3)
  - ANOREXIA [None]
  - GASTROINTESTINAL DISORDER [None]
  - STOMACH DISCOMFORT [None]
